FAERS Safety Report 9270481 (Version 5)
Quarter: 2015Q3

REPORT INFORMATION
  Report Type: Spontaneous
  Country: US (occurrence: US)
  Receive Date: 20130503
  Receipt Date: 20150702
  Transmission Date: 20151125
  Serious: Yes (Disabling)
  Sender: FDA-Public Use
  Company Number: US-009507513-1305USA001546

PATIENT
  Sex: Male

DRUGS (2)
  1. PROPECIA [Suspect]
     Active Substance: FINASTERIDE
     Indication: ALOPECIA
     Dosage: 1 MG, QD
     Route: 048
     Dates: start: 1998, end: 1999
  2. PROPECIA [Suspect]
     Active Substance: FINASTERIDE
     Dosage: 1 MG, QD
     Route: 048
     Dates: start: 200610, end: 200902

REACTIONS (17)
  - Hormone level abnormal [Unknown]
  - Penile size reduced [Unknown]
  - Testicular pain [Unknown]
  - Sexual dysfunction [Not Recovered/Not Resolved]
  - Brain injury [Unknown]
  - Groin pain [Unknown]
  - Depression [Not Recovered/Not Resolved]
  - Back injury [Not Recovered/Not Resolved]
  - Cognitive disorder [Not Recovered/Not Resolved]
  - Penis injury [Unknown]
  - Erectile dysfunction [Unknown]
  - Loss of libido [Unknown]
  - Anxiety [Not Recovered/Not Resolved]
  - Genital hypoaesthesia [Unknown]
  - Ejaculation disorder [Unknown]
  - Incontinence [Unknown]
  - Painful ejaculation [Unknown]

NARRATIVE: CASE EVENT DATE: 199809
